FAERS Safety Report 8605632-2 (Version None)
Quarter: 2012Q3

REPORT INFORMATION
  Report Type: 
  Country: None (occurrence: None)
  Receive Date: 20120820
  Receipt Date: 20120813
  Transmission Date: 20120928
  Serious: Yes (Other)
  Sender: FDA-Public Use
  Company Number: FR-B.I. PHARMACEUTICALS,INC./RIDGEFIELD-2012-FF-00050FF

PATIENT
  Sex: Male
  Weight: 106 kg

DRUGS (4)
  1. PRADAXA [Suspect]
     Indication: PROPHYLAXIS
     Dosage: 220 MG
     Route: 048
     Dates: start: 20111110, end: 20111111
  2. ACETAMINOPHEN [Concomitant]
     Indication: ANALGESIC THERAPY
     Dosage: 4 G
     Route: 042
     Dates: start: 20111110, end: 20111111
  3. CEFAZOLIN [Concomitant]
     Indication: ANTIBIOTIC THERAPY
     Dosage: 3 G
     Route: 042
     Dates: start: 20111110, end: 20111111
  4. MORPHINE [Concomitant]
     Indication: ANALGESIC THERAPY
     Route: 042
     Dates: start: 20111110, end: 20111111

REACTIONS (1)
  - RENAL FAILURE ACUTE [None]
